FAERS Safety Report 12878800 (Version 1)
Quarter: 2016Q4

REPORT INFORMATION
  Report Type: Spontaneous
  Country: US (occurrence: US)
  Receive Date: 20161024
  Receipt Date: 20161024
  Transmission Date: 20170207
  Serious: No
  Sender: FDA-Public Use
  Company Number: US-PRESTIGE BRANDS -1058702

PATIENT
  Age: 29 Year
  Sex: Female

DRUGS (1)
  1. MONISTAT 7 COMBINATION PACK [Suspect]
     Active Substance: MICONAZOLE NITRATE
     Route: 067
     Dates: start: 20160809

REACTIONS (4)
  - Vulvovaginal pain [Recovered/Resolved]
  - Vaginal haemorrhage [Recovered/Resolved]
  - Scratch [Recovered/Resolved]
  - Vaginal laceration [None]

NARRATIVE: CASE EVENT DATE: 20160809
